FAERS Safety Report 20289671 (Version 1)
Quarter: 2022Q1

REPORT INFORMATION
  Report Type: Spontaneous
  Country: US (occurrence: US)
  Receive Date: 20220104
  Receipt Date: 20220104
  Transmission Date: 20220423
  Serious: Yes (Other)
  Sender: FDA-Public Use
  Company Number: US-BEH-2021140001

PATIENT
  Age: 62 Year
  Sex: Female
  Weight: 61 kg

DRUGS (2)
  1. HIZENTRA [Suspect]
     Active Substance: HUMAN IMMUNOGLOBULIN G
     Indication: Dermatomyositis
     Dosage: 20 GRAM, QOW
     Route: 058
     Dates: start: 20200428
  2. HIZENTRA [Suspect]
     Active Substance: HUMAN IMMUNOGLOBULIN G
     Indication: Polymyositis
     Dosage: UNK
     Route: 065
     Dates: start: 20211118

REACTIONS (19)
  - Infusion site urticaria [Unknown]
  - Infusion site pruritus [Unknown]
  - Infusion site erythema [Unknown]
  - Infusion site swelling [Unknown]
  - Urticaria [Unknown]
  - Pruritus [Unknown]
  - Erythema [Unknown]
  - Peripheral swelling [Unknown]
  - Infusion site urticaria [Unknown]
  - Infusion site urticaria [Unknown]
  - Recalled product administered [Unknown]
  - Infusion site pruritus [Unknown]
  - Recalled product administered [Unknown]
  - Infusion site erythema [Unknown]
  - Recalled product administered [Unknown]
  - Infusion site swelling [Unknown]
  - Recalled product administered [Unknown]
  - No adverse event [Unknown]
  - Off label use [Unknown]

NARRATIVE: CASE EVENT DATE: 20211118
